FAERS Safety Report 11321115 (Version 1)
Quarter: 2015Q3

REPORT INFORMATION
  Report Type: Spontaneous
  Country: US (occurrence: None)
  Receive Date: 20150728
  Receipt Date: 20150728
  Transmission Date: 20151125
  Serious: No
  Sender: FDA-Public Use
  Company Number: None

PATIENT
  Age: 61 Year
  Sex: Female

DRUGS (10)
  1. TEMOZOLOMIDE 250MG CAP TEVA [Suspect]
     Active Substance: TEMOZOLOMIDE
     Indication: NEOPLASM MALIGNANT
     Dosage: QHS DAYS 10-14
     Route: 048
     Dates: start: 201502
  2. CAPECITABINE. [Concomitant]
     Active Substance: CAPECITABINE
  3. ONDANSETRO [Concomitant]
  4. ESZOPICLONE. [Concomitant]
     Active Substance: ESZOPICLONE
  5. FLUTICASONA [Concomitant]
     Active Substance: FLUTICASONE PROPIONATE
  6. WAL ITIN [Concomitant]
     Active Substance: LORATADINE
  7. LEVOYTHYROXIN [Concomitant]
  8. RELPAX [Concomitant]
     Active Substance: ELETRIPTAN HYDROBROMIDE
  9. DEXILANT [Concomitant]
     Active Substance: DEXLANSOPRAZOLE
  10. CLONAZEPAM. [Concomitant]
     Active Substance: CLONAZEPAM

REACTIONS (1)
  - Incorrect product storage [None]

NARRATIVE: CASE EVENT DATE: 20150723
